FAERS Safety Report 21633679 (Version 6)
Quarter: 2023Q4

REPORT INFORMATION
  Report Type: Report from Study
  Country: CA (occurrence: CA)
  Receive Date: 20221123
  Receipt Date: 20231023
  Transmission Date: 20240110
  Serious: Yes (Other)
  Sender: FDA-Public Use
  Company Number: CA-002147023-NVSC2022CA262900

PATIENT
  Age: 66 Year
  Sex: Male

DRUGS (2)
  1. TAFINLAR [Suspect]
     Active Substance: DABRAFENIB MESYLATE
     Indication: Metastatic malignant melanoma
     Dosage: 150 MG, BID (TWICE A DAY)
     Route: 048
     Dates: start: 20221014
  2. MEKINIST [Suspect]
     Active Substance: TRAMETINIB DIMETHYL SULFOXIDE
     Indication: Metastatic malignant melanoma
     Dosage: 2 MG, QD (ONCE DAILY)
     Route: 048
     Dates: start: 20221014

REACTIONS (8)
  - Transient ischaemic attack [Unknown]
  - Heart rate increased [Unknown]
  - Cardiac disorder [Unknown]
  - Muscle enzyme increased [Unknown]
  - Large intestine polyp [Unknown]
  - Peripheral swelling [Unknown]
  - Epistaxis [Unknown]
  - Hypertension [Unknown]
